FAERS Safety Report 17547647 (Version 5)
Quarter: 2020Q2

REPORT INFORMATION
  Report Type: Report from Study
  Country: GB (occurrence: GB)
  Receive Date: 20200316
  Receipt Date: 20200615
  Transmission Date: 20200713
  Serious: Yes (Hospitalization)
  Sender: FDA-Public Use
  Company Number: GB-VERTEX PHARMACEUTICALS-2020-005149

PATIENT
  Age: 43 Year
  Sex: Female

DRUGS (11)
  1. CREON 40 000 [Concomitant]
     Dosage: 1-2 CAPSULES, PRN
     Route: 048
     Dates: start: 2011
  2. VITAMIN E [Concomitant]
     Active Substance: .ALPHA.-TOCOPHEROL
     Dosage: UNK, QD
     Route: 048
     Dates: start: 2017
  3. VX-661/VX-770 [Suspect]
     Active Substance: IVACAFTOR\TEZACAFTOR
     Indication: CYSTIC FIBROSIS
     Dosage: UNK
     Route: 048
     Dates: start: 20200120
  4. AZITHROMYCIN ANHYDROUS. [Concomitant]
     Active Substance: AZITHROMYCIN ANHYDROUS
     Dosage: 500 MG
     Route: 048
     Dates: start: 2014
  5. FULTIUM D3 [Concomitant]
     Active Substance: CHOLECALCIFEROL
     Dosage: 1-2, QD
     Route: 048
     Dates: start: 2019
  6. DEOXYRIBONUCLEIC ACID [Concomitant]
     Active Substance: DEOXYRIBONUCLIEC ACID
     Dosage: 2.5 MG, QD
     Dates: start: 2017
  7. PLACEBO [Suspect]
     Active Substance: UNSPECIFIED INGREDIENT
     Indication: CYSTIC FIBROSIS
     Dosage: UNK
     Route: 048
     Dates: start: 20200120
  8. VITAMIN A + D [Concomitant]
     Active Substance: ERGOCALCIFEROL\RETINOL
     Dosage: UNK, QD
     Route: 048
     Dates: start: 2017
  9. TERBUTALINE [Concomitant]
     Active Substance: TERBUTALINE
     Dosage: 1-2 PUFFS, PRN
     Dates: start: 2013
  10. SYMBICORT [Concomitant]
     Active Substance: BUDESONIDE\FORMOTEROL FUMARATE DIHYDRATE
     Dosage: 2 PUFFS, BD
     Dates: start: 2017
  11. LAXIDO [Concomitant]
     Active Substance: POLYETHYLENE GLYCOL 3350\POTASSIUM CHLORIDE\SODIUM BICARBONATE\SODIUM CHLORIDE
     Dosage: 1-2, PRN
     Route: 048
     Dates: start: 2011

REACTIONS (2)
  - Anxiety [Recovering/Resolving]
  - Insomnia [Recovering/Resolving]

NARRATIVE: CASE EVENT DATE: 20200305
